FAERS Safety Report 14357027 (Version 1)
Quarter: 2018Q1

REPORT INFORMATION
  Report Type: Spontaneous
  Country: US (occurrence: US)
  Receive Date: 20180105
  Receipt Date: 20180105
  Transmission Date: 20180509
  Serious: No
  Sender: FDA-Public Use
  Company Number: PHEH2018US000572

PATIENT
  Sex: Male

DRUGS (1)
  1. VOTRIENT [Suspect]
     Active Substance: PAZOPANIB HYDROCHLORIDE
     Indication: NEOPLASM MALIGNANT
     Dosage: 4 DF, QD (AT LEAST 1 HOUR BEFORE OR 2 HOURS AFTER A MEAL)
     Route: 048
     Dates: start: 20171211

REACTIONS (3)
  - Arthralgia [Recovered/Resolved]
  - Nausea [Recovered/Resolved]
  - Product use in unapproved indication [Unknown]
